FAERS Safety Report 5404972-8 (Version None)
Quarter: 2007Q3

REPORT INFORMATION
  Report Type: 
  Country: None (occurrence: None)
  Receive Date: 20070801
  Receipt Date: 20070725
  Transmission Date: 20080115
  Serious: Yes (Life-Threatening)
  Sender: FDA-Public Use
  Company Number: 17037

PATIENT
  Sex: Female

DRUGS (3)
  1. LEUCOVORIN CALCIUM [Suspect]
  2. FLUOROURACIL [Suspect]
  3. OXALIPLATIN [Suspect]

REACTIONS (5)
  - CHILLS [None]
  - NASOPHARYNGITIS [None]
  - PARAESTHESIA [None]
  - PYREXIA [None]
  - TREMOR [None]
